FAERS Safety Report 5829460-6 (Version None)
Quarter: 2008Q4

REPORT INFORMATION
  Report Type: 
  Country: None (occurrence: None)
  Receive Date: 20080729
  Receipt Date: 20080715
  Transmission Date: 20090506
  Serious: Yes (Disabling, Other)
  Sender: FDA-Public Use
  Company Number: 2008AP001742

PATIENT
  Age: 86 Year
  Sex: Female
  Weight: 53.5244 kg

DRUGS (12)
  1. DILT-CD [Suspect]
     Dosage: 180 MG; QD; PO
     Route: 048
     Dates: start: 20080201, end: 20080501
  2. PILOCARPINE [Concomitant]
  3. LATANOPROST [Concomitant]
  4. TIMOLOL [Concomitant]
  5. LOSARTAN POTASSIUM [Concomitant]
  6. LOSARTAN POTASSIJM [Concomitant]
  7. FEXOFENADINE HYDROCHLORIDE [Concomitant]
  8. LEVOTHYROXINE SODIUM [Concomitant]
  9. LANSOPRAZOLE [Concomitant]
  10. LEVOFLOXACIN [Concomitant]
  11. RISEDRONATE SODIUM [Concomitant]
  12. AMLODIPINE BESYLATE [Concomitant]

REACTIONS (7)
  - ARTHRALGIA [None]
  - BLINDNESS [None]
  - CONDITION AGGRAVATED [None]
  - DYSGEUSIA [None]
  - GLAUCOMA [None]
  - PAIN [None]
  - PRODUCT QUALITY ISSUE [None]
